FAERS Safety Report 6516449-7 (Version None)
Quarter: 2009Q4

REPORT INFORMATION
  Report Type: 
  Country: None (occurrence: None)
  Receive Date: 20091223
  Receipt Date: 20091215
  Transmission Date: 20100525
  Serious: Yes (Hospitalization)
  Sender: FDA-Public Use
  Company Number: US-JNJFOC-20091204902

PATIENT
  Sex: Female
  Weight: 124.74 kg

DRUGS (18)
  1. SIMPONI [Suspect]
     Indication: PSORIATIC ARTHROPATHY
     Route: 058
  2. PREDNISONE [Concomitant]
     Route: 048
  3. VALIUM [Concomitant]
     Route: 048
  4. QUETIAPINE FUMARATE [Concomitant]
     Route: 048
  5. HYDROXYZINE [Concomitant]
     Route: 048
  6. NEXIUM [Concomitant]
     Route: 048
  7. SORIATANE [Concomitant]
     Route: 048
  8. KLOR-CON [Concomitant]
     Route: 048
  9. GLIMEPIRIDE [Concomitant]
     Route: 048
  10. CARVEDILOL [Concomitant]
     Route: 048
  11. PROMETHAZINE [Concomitant]
     Route: 048
  12. CELEXA [Concomitant]
     Route: 048
  13. INSULIN [Concomitant]
  14. INSULIN [Concomitant]
  15. HYOSCYAMINE [Concomitant]
     Route: 048
  16. OXYCODONE [Concomitant]
     Route: 048
  17. OXYCODONE HCL AND ACETAMINOPHEN [Concomitant]
     Route: 048
  18. NOVOLOG [Concomitant]

REACTIONS (3)
  - DEHYDRATION [None]
  - DYSPNOEA [None]
  - THROMBOSIS [None]
